FAERS Safety Report 14338655 (Version 1)
Quarter: 2017Q4

REPORT INFORMATION
  Report Type: Spontaneous
  Country: GB (occurrence: GB)
  Receive Date: 20171229
  Receipt Date: 20171229
  Transmission Date: 20180321
  Serious: Yes (Other)
  Sender: FDA-Public Use
  Company Number: PHHY2017GB191951

PATIENT
  Age: 26 Year
  Sex: Female

DRUGS (1)
  1. ACZ885 [Suspect]
     Active Substance: CANAKINUMAB
     Indication: COGAN^S SYNDROME
     Dosage: 150 MG, UNK (4 WEEKLY)
     Route: 065

REACTIONS (3)
  - Maternal exposure during pregnancy [Unknown]
  - Product use in unapproved indication [Unknown]
  - Abortion spontaneous [Unknown]
